FAERS Safety Report 9603085 (Version 2)
Quarter: 2014Q1

REPORT INFORMATION
  Report Type: Spontaneous
  Country: JP (occurrence: JP)
  Receive Date: 20131007
  Receipt Date: 20140106
  Transmission Date: 20141002
  Serious: Yes (Other)
  Sender: FDA-Public Use
  Company Number: JP-JNJFOC-20131003019

PATIENT
  Age: 71 Year
  Sex: Female

DRUGS (1)
  1. FENTANYL [Suspect]
     Indication: CANCER PAIN
     Route: 062
     Dates: start: 20130917

REACTIONS (2)
  - Hallucination [Recovering/Resolving]
  - Drug prescribing error [Unknown]
